FAERS Safety Report 8008248-4 (Version None)
Quarter: 2011Q4

REPORT INFORMATION
  Report Type: 
  Country: None (occurrence: None)
  Receive Date: 20111227
  Receipt Date: 20111222
  Transmission Date: 20120403
  Serious: Yes (Death, Life-Threatening, Hospitalization, Disabling)
  Sender: FDA-Public Use
  Company Number: BR-ASTRAZENECA-2011SE26835

PATIENT
  Age: 63 Year
  Sex: Male
  Weight: 108 kg

DRUGS (12)
  1. PLAVIX [Concomitant]
     Route: 048
     Dates: start: 20010101
  2. SOMALGIN CARDIO [Concomitant]
     Indication: HYPERTENSION
     Route: 048
     Dates: start: 20010101
  3. INSULIN [Concomitant]
     Indication: DIABETES MELLITUS
     Route: 058
     Dates: start: 20010101
  4. ADALAT [Concomitant]
     Indication: HYPERTENSION
     Route: 048
     Dates: start: 20010101
  5. ALPRAZOLAM [Concomitant]
     Indication: INSOMNIA
     Route: 048
     Dates: start: 20010101
  6. ADALAT [Concomitant]
     Indication: HYPERTENSION
     Route: 048
     Dates: end: 20010101
  7. ATACAND HCT [Suspect]
     Indication: HYPERTENSION
     Dosage: 16/12.5 MG TWO TIMES A DAY
     Route: 048
     Dates: start: 20010101
  8. ATORVASTATIN [Concomitant]
     Route: 048
     Dates: start: 20010101
  9. LABIRIN [Concomitant]
     Route: 048
     Dates: start: 20010101
  10. LASIX [Concomitant]
     Indication: HYPERTENSION
     Route: 048
     Dates: start: 20010101
  11. METOPROLOL SUCCINATE [Suspect]
     Indication: HYPERTENSION
     Route: 048
     Dates: start: 20070101
  12. SERTALINE [Concomitant]
     Route: 048
     Dates: start: 20010101

REACTIONS (12)
  - PLEURAL EFFUSION [None]
  - RETINAL DISORDER [None]
  - RESPIRATORY TRACT INFECTION [None]
  - RIB FRACTURE [None]
  - FALL [None]
  - BLOOD PRESSURE INADEQUATELY CONTROLLED [None]
  - OFF LABEL USE [None]
  - WEIGHT DECREASED [None]
  - NERVE INJURY [None]
  - DRUG INEFFECTIVE [None]
  - INFARCTION [None]
  - VENOUS OCCLUSION [None]
